FAERS Safety Report 4877284-9 (Version None)
Quarter: 2006Q1

REPORT INFORMATION
  Report Type: 
  Country: None (occurrence: None)
  Receive Date: 20060106
  Receipt Date: 20051116
  Transmission Date: 20060701
  Serious: Yes (Death)
  Sender: FDA-Public Use
  Company Number: 2006-CZ-00038

PATIENT
  Age: 57 Year
  Sex: Female

DRUGS (2)
  1. CEFALEXIN 250 MG TABLETS BP (CEFALEXIN) [Suspect]
     Dosage: INTRAVENOUS
     Route: 042
  2. CEFAZOLIN [Suspect]
     Dosage: INTRAVENOUS
     Route: 042

REACTIONS (14)
  - BODY TEMPERATURE DECREASED [None]
  - CHEST PAIN [None]
  - CYANOSIS [None]
  - DRUG HYPERSENSITIVITY [None]
  - FLANK PAIN [None]
  - GAZE PALSY [None]
  - HEART RATE DECREASED [None]
  - MALAISE [None]
  - MUSCLE TWITCHING [None]
  - MYDRIASIS [None]
  - NAUSEA [None]
  - PARAESTHESIA [None]
  - RESPIRATORY RATE INCREASED [None]
  - URINARY INCONTINENCE [None]
